FAERS Safety Report 8288532-X (Version None)
Quarter: 2012Q2

REPORT INFORMATION
  Report Type: 
  Country: None (occurrence: None)
  Receive Date: 20120416
  Receipt Date: 20120404
  Transmission Date: 20120825
  Serious: Yes (Other)
  Sender: FDA-Public Use
  Company Number: IT-PFIZER INC-2012085817

PATIENT
  Age: 35 Year
  Sex: Male
  Weight: 62 kg

DRUGS (2)
  1. CRIZOTINIB [Suspect]
     Indication: NON-HODGKIN'S LYMPHOMA
     Dosage: 500 MG, 1X/DAY
     Route: 048
     Dates: start: 20120223
  2. METHYLPREDNISOLONE [Suspect]
     Indication: PROPHYLAXIS
     Dosage: 32 MG, SINGLE
     Route: 048
     Dates: start: 20120403, end: 20120403

REACTIONS (1)
  - DEEP VEIN THROMBOSIS [None]
